FAERS Safety Report 8886207 (Version 1)
Quarter: 2012Q4

REPORT INFORMATION
  Report Type: 
  Country: JP (occurrence: JP)
  Receive Date: 20121105
  Receipt Date: 20121105
  Transmission Date: 20130627
  Serious: Yes (Death)
  Sender: FDA-Public Use
  Company Number: JP-SANOFI-AVENTIS-2012SA080366

PATIENT
  Age: 60 Year
  Sex: Male

DRUGS (1)
  1. MYSLEE [Suspect]
     Indication: DRUG USE FOR UNKNOWN INDICATION
     Route: 048

REACTIONS (1)
  - Abnormal behaviour [Fatal]
